FAERS Safety Report 6698042-9 (Version None)
Quarter: 2010Q2

REPORT INFORMATION
  Report Type: 
  Country: None (occurrence: None)
  Receive Date: 20100427
  Receipt Date: 20100414
  Transmission Date: 20101027
  Serious: No
  Sender: FDA-Public Use
  Company Number: US-B.I. PHARMACEUTICALS,INC./RIDGEFIELD-2010-BP-04365BP

PATIENT
  Sex: Male

DRUGS (2)
  1. ZANTAC 150 [Suspect]
     Indication: DYSPEPSIA
     Dosage: 150 MG
     Route: 048
     Dates: start: 20100412, end: 20100413
  2. FLOMAX [Concomitant]
     Indication: PROSTATE CANCER

REACTIONS (3)
  - ABDOMINAL PAIN [None]
  - CHILLS [None]
  - CONSTIPATION [None]
